FAERS Safety Report 18748875 (Version 1)
Quarter: 2021Q1

REPORT INFORMATION
  Report Type: Report from Study
  Country: US (occurrence: US)
  Receive Date: 20210116
  Receipt Date: 20210116
  Transmission Date: 20210419
  Serious: No
  Sender: FDA-Public Use
  Company Number: NVSC2021US006632

PATIENT
  Sex: Female
  Weight: 78.46 kg

DRUGS (1)
  1. COSENTYX [Suspect]
     Active Substance: SECUKINUMAB
     Indication: PSORIASIS
     Dosage: 150 MG, Q5W
     Route: 058

REACTIONS (4)
  - Upper respiratory tract infection [Unknown]
  - Tremor [Unknown]
  - Nasal congestion [Unknown]
  - Cough [Unknown]
